FAERS Safety Report 8952955 (Version 1)
Quarter: 2012Q4

REPORT INFORMATION
  Report Type: 
  Country: US (occurrence: US)
  Receive Date: 20121203
  Receipt Date: 20121203
  Transmission Date: 20130627
  Serious: Yes (Hospitalization)
  Sender: FDA-Public Use
  Company Number: US-AMGEN-USASP2012076798

PATIENT
  Age: 47 Year
  Sex: Female

DRUGS (2)
  1. NEUPOGEN [Suspect]
     Indication: PRODUCT USED FOR UNKNOWN INDICATION
     Dosage: UNK
     Dates: start: 201208
  2. CHEMOTHERAPEUTICS [Concomitant]
     Dosage: UNK

REACTIONS (4)
  - Infection [Unknown]
  - Malaise [Unknown]
  - Influenza [Unknown]
  - Bone pain [Unknown]
